FAERS Safety Report 17075253 (Version 1)
Quarter: 2019Q4

REPORT INFORMATION
  Report Type: Report from Study
  Country: US (occurrence: US)
  Receive Date: 20191126
  Receipt Date: 20191126
  Transmission Date: 20200122
  Serious: No
  Sender: FDA-Public Use
  Company Number: US-BEH-2019109863

PATIENT
  Age: 24 Year
  Sex: Male

DRUGS (1)
  1. HIZENTRA [Suspect]
     Active Substance: HUMAN IMMUNOGLOBULIN G
     Dosage: UNK
     Route: 042
     Dates: start: 20121122

REACTIONS (7)
  - Infusion site pain [Unknown]
  - Incorrect route of product administration [Unknown]
  - Infusion site swelling [Unknown]
  - Vein collapse [Unknown]
  - Infusion site discolouration [Unknown]
  - No adverse event [Unknown]
  - Infusion site extravasation [Unknown]
